FAERS Safety Report 16938358 (Version 2)
Quarter: 2019Q4

REPORT INFORMATION
  Report Type: Report from Study
  Country: MX (occurrence: MX)
  Receive Date: 20191019
  Receipt Date: 20191023
  Transmission Date: 20200122
  Serious: Yes (Death)
  Sender: FDA-Public Use
  Company Number: NVSC2019MX008700

PATIENT
  Sex: Male
  Weight: 90 kg

DRUGS (1)
  1. EXELON [Suspect]
     Active Substance: RIVASTIGMINE TARTRATE
     Indication: PRODUCT USED FOR UNKNOWN INDICATION
     Dosage: 4.6 MG, QD PATCH 5 (CM2)
     Route: 062
     Dates: start: 2018, end: 201908

REACTIONS (1)
  - Death [Fatal]
